FAERS Safety Report 8179956-X (Version None)
Quarter: 2012Q1

REPORT INFORMATION
  Report Type: 
  Country: None (occurrence: None)
  Receive Date: 20120229
  Receipt Date: 20120222
  Transmission Date: 20120608
  Serious: Yes (Other)
  Sender: FDA-Public Use
  Company Number: TPA2012A00979

PATIENT
  Age: 39 Year
  Sex: Female

DRUGS (2)
  1. EDARBI [Suspect]
     Indication: HYPERTENSION
  2. ZANTAC [Concomitant]

REACTIONS (1)
  - ANAPHYLACTIC REACTION [None]
